FAERS Safety Report 19467556 (Version 1)
Quarter: 2021Q2

REPORT INFORMATION
  Report Type: Spontaneous
  Country: US (occurrence: US)
  Receive Date: 20210628
  Receipt Date: 20210628
  Transmission Date: 20210717
  Serious: Yes (Other)
  Sender: FDA-Public Use
  Company Number: None

PATIENT
  Age: 28 Year
  Sex: Female
  Weight: 121.95 kg

DRUGS (2)
  1. BENADRYL GEL [Suspect]
     Active Substance: DIPHENHYDRAMINE HYDROCHLORIDE
     Indication: ARTHROPOD BITE
     Route: 061
  2. BENADRYL GEL [Suspect]
     Active Substance: DIPHENHYDRAMINE HYDROCHLORIDE
     Indication: PRURITUS
     Route: 061

REACTIONS (3)
  - Skin laceration [None]
  - Application site haemorrhage [None]
  - Product contamination physical [None]

NARRATIVE: CASE EVENT DATE: 20210627
